FAERS Safety Report 6122112-7 (Version None)
Quarter: 2009Q1

REPORT INFORMATION
  Report Type: 
  Country: None (occurrence: None)
  Receive Date: 20090316
  Receipt Date: 20090316
  Transmission Date: 20090719
  Serious: Yes (Other)
  Sender: FDA-Public Use
  Company Number: None

PATIENT
  Sex: Female
  Weight: 97.5234 kg

DRUGS (1)
  1. ZOMETA [Suspect]
     Indication: BREAST CANCER
     Dosage: 4MG EVERY 6 MONTHS IV DRIP
     Route: 041
     Dates: start: 20080801, end: 20090311

REACTIONS (1)
  - EYE INFLAMMATION [None]
